FAERS Safety Report 6672094-4 (Version None)
Quarter: 2010Q2

REPORT INFORMATION
  Report Type: 
  Country: None (occurrence: None)
  Receive Date: 20100407
  Receipt Date: 20100407
  Transmission Date: 20101027
  Serious: Yes (Hospitalization)
  Sender: FDA-Public Use
  Company Number: None

PATIENT
  Age: 62 Year
  Sex: Male
  Weight: 52.9 kg

DRUGS (1)
  1. ALBUTEROL SULFATE AND IPRATROPIUM BROMIDE [Suspect]
     Indication: RESPIRATORY FAILURE
     Dosage: 6 PUFF (S) OTHER PO
     Route: 048
     Dates: start: 20100212, end: 20100214

REACTIONS (1)
  - BRONCHOSPASM [None]
